FAERS Safety Report 8173292-3 (Version None)
Quarter: 2012Q1

REPORT INFORMATION
  Report Type: 
  Country: None (occurrence: None)
  Receive Date: 20120104
  Receipt Date: 20110921
  Transmission Date: 20120608
  Serious: No
  Sender: FDA-Public Use
  Company Number: 2011HGS-002567

PATIENT
  Age: 32 Year
  Sex: Female
  Weight: 48.9885 kg

DRUGS (3)
  1. BENLYSTA [Suspect]
     Indication: SYSTEMIC LUPUS ERYTHEMATOSUS
     Dosage: 10 MG/KG, 1 IN 4 WK, INTRAVENOUS DRIP
     Route: 041
     Dates: start: 20110527
  2. PREDNISONE [Concomitant]
  3. MOBIC [Concomitant]

REACTIONS (2)
  - INSOMNIA [None]
  - SUNBURN [None]
